FAERS Safety Report 12042564 (Version 1)
Quarter: 2016Q1

REPORT INFORMATION
  Report Type: Spontaneous
  Country: US (occurrence: US)
  Receive Date: 20160208
  Receipt Date: 20160208
  Transmission Date: 20160526
  Serious: Yes (Death, Congenital Anomaly, Other)
  Sender: FDA-Public Use
  Company Number: US-INDIVIOR LIMITED-INDV-087585-2016

PATIENT
  Age: 0 Year
  Sex: Male
  Weight: 2.27 kg

DRUGS (4)
  1. BUPRENORPHINE GENERIC TAB [Suspect]
     Active Substance: BUPRENORPHINE
     Dosage: 20MG, DAILY
     Route: 064
     Dates: start: 2012, end: 20120513
  2. NICOTINE. [Suspect]
     Active Substance: NICOTINE
     Indication: NICOTINE DEPENDENCE
     Dosage: 1 CIGARETTE
     Route: 064
     Dates: start: 201109, end: 20120513
  3. BUPRENORPHINE GENERIC TAB [Suspect]
     Active Substance: BUPRENORPHINE
     Indication: DRUG DEPENDENCE
     Dosage: 24MG, DAILY
     Route: 064
     Dates: start: 201110, end: 2012
  4. SUBOXONE [Suspect]
     Active Substance: BUPRENORPHINE HYDROCHLORIDE\NALOXONE HYDROCHLORIDE
     Indication: DRUG DEPENDENCE
     Dosage: 24MG, DAILY FOR ABOUT 6 WEEKS
     Route: 064
     Dates: start: 201109, end: 201110

REACTIONS (5)
  - Congenital urethral anomaly [Fatal]
  - Foetal exposure during pregnancy [Recovered/Resolved]
  - Contusion [Recovered/Resolved]
  - Low birth weight baby [Recovered/Resolved]
  - Premature baby [Recovered/Resolved]

NARRATIVE: CASE EVENT DATE: 2011
